FAERS Safety Report 6548008-4 (Version None)
Quarter: 2010Q1

REPORT INFORMATION
  Report Type: 
  Country: None (occurrence: None)
  Receive Date: 20100124
  Receipt Date: 20091214
  Transmission Date: 20100710
  Serious: No
  Sender: FDA-Public Use
  Company Number: US-ALEXION-A200901079

PATIENT
  Sex: Female

DRUGS (6)
  1. SOLIRIS [Suspect]
     Indication: PAROXYSMAL NOCTURNAL HAEMOGLOBINURIA
     Dosage: 600 MG, UNK
     Route: 042
     Dates: start: 20090310
  2. SOLIRIS [Suspect]
     Dosage: 900 MG, UNK
     Route: 042
  3. PROCRIT                            /00909301/ [Concomitant]
     Dosage: 40000 UT, QW
     Route: 048
  4. FOLIC ACID [Concomitant]
     Dosage: 1 MG, QD
     Route: 048
  5. CENTRUM                            /00554501/ [Concomitant]
     Dosage: QD
     Route: 048
  6. CLORAZEPATE DIPOTASSIUM [Concomitant]
     Dosage: 7.5 MG, TID, PRN
     Route: 048

REACTIONS (3)
  - ARTHRITIS [None]
  - LOW DENSITY LIPOPROTEIN INCREASED [None]
  - PARAESTHESIA [None]
